FAERS Safety Report 6941981-1 (Version None)
Quarter: 2010Q3

REPORT INFORMATION
  Report Type: 
  Country: None (occurrence: None)
  Receive Date: 20100826
  Receipt Date: 20100813
  Transmission Date: 20110219
  Serious: Yes (Other)
  Sender: FDA-Public Use
  Company Number: PHHY2010US48765

PATIENT
  Sex: Female

DRUGS (6)
  1. EXJADE [Suspect]
     Indication: SICKLE CELL ANAEMIA
     Dosage: 1250 MG, QD
  2. EXJADE [Suspect]
     Indication: IRON OVERLOAD
     Dosage: 1500 MG, DAILY
     Route: 048
     Dates: start: 20070101
  3. PEN-VEE K [Concomitant]
     Dosage: 250 MG, TID
     Dates: start: 19990101
  4. FOLIC ACID [Concomitant]
     Dosage: 1 G DAILY
     Route: 048
     Dates: start: 19990101
  5. BENTYL [Concomitant]
     Dosage: UNK
     Dates: start: 20100101
  6. LEVSIN [Concomitant]
     Dosage: 0.375 G, BID
     Route: 048
     Dates: start: 20090101

REACTIONS (4)
  - ABDOMINAL DISCOMFORT [None]
  - DRUG DOSE OMISSION [None]
  - MALAISE [None]
  - TREATMENT NONCOMPLIANCE [None]
